FAERS Safety Report 7171111-5 (Version None)
Quarter: 2010Q4

REPORT INFORMATION
  Report Type: 
  Country: None (occurrence: None)
  Receive Date: 20101217
  Receipt Date: 20101213
  Transmission Date: 20110411
  Serious: Yes (Life-Threatening, Hospitalization, Other)
  Sender: FDA-Public Use
  Company Number: PHHY2010FI71699

PATIENT
  Sex: Male

DRUGS (13)
  1. TASIGNA [Suspect]
     Indication: CHRONIC LYMPHOCYTIC LEUKAEMIA
     Dosage: 400 MG TWICE DAILY
     Route: 048
  2. TASIGNA [Suspect]
     Dosage: 200 MG, BID
     Route: 048
     Dates: end: 20101015
  3. AVANDAMET [Concomitant]
     Indication: DIABETES MELLITUS
     Dosage: 1 DF, BID
     Route: 048
     Dates: end: 20101012
  4. AMARYL [Concomitant]
     Indication: DIABETES MELLITUS
     Dosage: 1 DF, BID
     Route: 048
     Dates: end: 20101012
  5. CELECTOL [Concomitant]
     Indication: HYPERTENSION
     Dosage: 1 DF, QD
     Route: 048
     Dates: end: 20101013
  6. ZANIDIP [Concomitant]
     Indication: HYPERTENSION
     Dosage: 1 DF, QD
     Route: 048
     Dates: end: 20101012
  7. LEVEMIR [Concomitant]
     Indication: DIABETES MELLITUS
     Dosage: 20 UNITS A DAY
     Route: 058
     Dates: start: 20101013
  8. MAREVAN ^BRITISH DRUG HOUSES^ [Concomitant]
     Indication: ATRIAL FIBRILLATION
     Dosage: UNK
     Route: 048
     Dates: start: 20101013
  9. BISOPROLOL [Concomitant]
     Indication: ATRIAL FIBRILLATION
     Dosage: 1 DF, QD
     Route: 048
     Dates: start: 20101013
  10. BISOPROLOL [Concomitant]
     Indication: HYPERTENSION
  11. ORMOX [Concomitant]
     Indication: CORONARY ARTERY DISEASE
     Dosage: 0.5 DF, BID
     Route: 048
  12. DIOVAN [Concomitant]
     Indication: HYPERTENSION
     Dosage: 1 DF, QD
     Route: 048
     Dates: start: 20101013
  13. FURESIS [Concomitant]
     Indication: CARDIAC FAILURE
     Dosage: +1 TABLETS A DAY
     Route: 048
     Dates: start: 20101013

REACTIONS (6)
  - ATRIAL FIBRILLATION [None]
  - CHEST PAIN [None]
  - DIABETES MELLITUS [None]
  - DYSPNOEA [None]
  - GENERAL PHYSICAL HEALTH DETERIORATION [None]
  - RESUSCITATION [None]
